FAERS Safety Report 4311393-8 (Version None)
Quarter: 2004Q1

REPORT INFORMATION
  Report Type: 
  Country: None (occurrence: None)
  Receive Date: 20040303
  Receipt Date: 20040303
  Transmission Date: 20041129
  Serious: No
  Sender: FDA-Public Use
  Company Number: None

PATIENT
  Sex: Male

DRUGS (1)
  1. TIROFIBAN [Suspect]
     Indication: STENT PLACEMENT
     Dosage: 0.1 MCG/KG/MIN
     Dates: start: 20031106

REACTIONS (2)
  - HAEMATURIA [None]
  - HAEMOPTYSIS [None]
